FAERS Safety Report 12647031 (Version 1)
Quarter: 2016Q3

REPORT INFORMATION
  Report Type: Spontaneous
  Country: US (occurrence: None)
  Receive Date: 20160811
  Receipt Date: 20160811
  Transmission Date: 20161109
  Serious: Yes (Other)
  Sender: FDA-Public Use
  Company Number: None

PATIENT
  Age: 74 Year
  Sex: Male
  Weight: 85.73 kg

DRUGS (15)
  1. BACLOFEN. [Concomitant]
     Active Substance: BACLOFEN
  2. GABBAPENTIN [Concomitant]
  3. NORVASC [Concomitant]
     Active Substance: AMLODIPINE BESYLATE
  4. ZETIA [Concomitant]
     Active Substance: EZETIMIBE
  5. VITAMIN D3 [Concomitant]
     Active Substance: CHOLECALCIFEROL
  6. ASA [Concomitant]
     Active Substance: ASPIRIN
  7. MIRALAX [Concomitant]
     Active Substance: POLYETHYLENE GLYCOL 3350
  8. CRESTOR [Suspect]
     Active Substance: ROSUVASTATIN CALCIUM
     Indication: LOW DENSITY LIPOPROTEIN INCREASED
     Route: 048
  9. SINGULAIR [Concomitant]
     Active Substance: MONTELUKAST SODIUM
  10. ZYLOPRIM [Concomitant]
     Active Substance: ALLOPURINOL
  11. CITACAL WITH D [Concomitant]
  12. COZAAR [Concomitant]
     Active Substance: LOSARTAN POTASSIUM
  13. CYSTOPROTEK [Concomitant]
     Active Substance: SODIUM CHONDROITIN SULFATE
  14. TENS [Concomitant]
  15. ALLEGRA [Concomitant]
     Active Substance: FEXOFENADINE HYDROCHLORIDE

REACTIONS (2)
  - Hepatic pain [None]
  - Hepatic enzyme increased [None]

NARRATIVE: CASE EVENT DATE: 20160408
